FAERS Safety Report 19532449 (Version 1)
Quarter: 2021Q3

REPORT INFORMATION
  Report Type: Spontaneous
  Country: NL (occurrence: NL)
  Receive Date: 20210713
  Receipt Date: 20210713
  Transmission Date: 20211014
  Serious: Yes (Death, Life-Threatening, Hospitalization, Other)
  Sender: FDA-Public Use
  Company Number: NL-AUROBINDO-AUR-APL-2021-029203

PATIENT
  Age: 83 Year
  Sex: Female
  Weight: 54 kg

DRUGS (5)
  1. COMIRNATY [Suspect]
     Active Substance: TOZINAMERAN
     Indication: COVID-19 IMMUNISATION
     Dosage: 1 DOSAGE FORM
     Route: 065
     Dates: start: 20210402
  2. CO?TRIMOXAZOL 960 MG TABLET [Suspect]
     Active Substance: SULFAMETHOXAZOLE\TRIMETHOPRIM
     Indication: CYSTITIS
     Dosage: 960 MG
     Route: 065
     Dates: start: 20210325, end: 20210331
  3. FUROSEMIDE. [Concomitant]
     Active Substance: FUROSEMIDE
     Indication: CARDIAC FAILURE
     Dosage: UNK (1 DD 1 IN THE EVENING)
     Route: 065
  4. ACENOCOUMAROL [Concomitant]
     Active Substance: ACENOCOUMAROL
     Indication: PRODUCT USED FOR UNKNOWN INDICATION
     Dosage: 1 MILLIGRAM
     Route: 065
  5. OXAZEPAM. [Concomitant]
     Active Substance: OXAZEPAM
     Indication: PRODUCT USED FOR UNKNOWN INDICATION
     Dosage: 10 MILLIGRAM
     Route: 065

REACTIONS (12)
  - Fatigue [Unknown]
  - Myalgia [Unknown]
  - Headache [Fatal]
  - Vomiting [Unknown]
  - Sputum retention [Unknown]
  - Nausea [Unknown]
  - Malaise [Unknown]
  - Arthralgia [Unknown]
  - Ecchymosis [Fatal]
  - Urine output decreased [Unknown]
  - Pneumonia [Fatal]
  - Abdominal pain [Unknown]

NARRATIVE: CASE EVENT DATE: 20210326
